FAERS Safety Report 7980365-4 (Version None)
Quarter: 2011Q4

REPORT INFORMATION
  Report Type: 
  Country: None (occurrence: None)
  Receive Date: 20111214
  Receipt Date: 20111207
  Transmission Date: 20120403
  Serious: Yes (Hospitalization, Other)
  Sender: FDA-Public Use
  Company Number: US-SANOFI-AVENTIS-2011SA080608

PATIENT
  Age: 87 Year
  Sex: Female
  Weight: 57.6 kg

DRUGS (13)
  1. PHENYTOIN SODIUM [Suspect]
     Dates: start: 20111101
  2. SOTALOL HCL [Suspect]
     Indication: ATRIAL FIBRILLATION
  3. PHENYTOIN SODIUM [Suspect]
     Dates: start: 20101001, end: 20101001
  4. PHENYTOIN SODIUM [Suspect]
     Dates: start: 20101001, end: 20101001
  5. XOPENEX [Suspect]
  6. VITAMIN D [Concomitant]
  7. ASPIRIN [Concomitant]
  8. LOVENOX [Suspect]
     Route: 065
  9. PHENYTOIN SODIUM [Suspect]
     Dates: start: 20100801
  10. ALENDRONATE SODIUM [Suspect]
  11. FEOSOL [Concomitant]
  12. CENTRUM [Concomitant]
  13. PROTONIX [Suspect]
     Indication: GASTRIC DISORDER

REACTIONS (5)
  - FATIGUE [None]
  - SOMNOLENCE [None]
  - DRUG LEVEL FLUCTUATING [None]
  - ACCIDENT [None]
  - CONVULSION [None]
